FAERS Safety Report 12405696 (Version 1)
Quarter: 2016Q2

REPORT INFORMATION
  Report Type: Spontaneous
  Country: US (occurrence: None)
  Receive Date: 20160525
  Receipt Date: 20160525
  Transmission Date: 20160815
  Serious: No
  Sender: FDA-Public Use
  Company Number: None

PATIENT
  Age: 57 Year
  Sex: Female

DRUGS (13)
  1. OMEPRAZOLE. [Concomitant]
     Active Substance: OMEPRAZOLE
  2. RESTASIS [Concomitant]
     Active Substance: CYCLOSPORINE
  3. DICYCLOMINE [Concomitant]
     Active Substance: DICYCLOMINE HYDROCHLORIDE
  4. TOPIRAMATE. [Concomitant]
     Active Substance: TOPIRAMATE
  5. COPAXONE [Suspect]
     Active Substance: GLATIRAMER ACETATE
     Indication: MULTIPLE SCLEROSIS
     Route: 058
     Dates: start: 20130813
  6. SYNTHROID [Concomitant]
     Active Substance: LEVOTHYROXINE SODIUM
  7. GABAPENTIN. [Concomitant]
     Active Substance: GABAPENTIN
  8. SPIRONOLACT [Concomitant]
  9. CEFDINIR. [Concomitant]
     Active Substance: CEFDINIR
  10. MAXALT [Concomitant]
     Active Substance: RIZATRIPTAN BENZOATE
  11. MELOXICAM. [Concomitant]
     Active Substance: MELOXICAM
  12. TEMAZEPAM. [Concomitant]
     Active Substance: TEMAZEPAM
  13. PANTOPRAZOLE [Concomitant]
     Active Substance: PANTOPRAZOLE SODIUM

REACTIONS (2)
  - Injection site irritation [None]
  - Skin tightness [None]

NARRATIVE: CASE EVENT DATE: 201602
